FAERS Safety Report 8720706 (Version 2)
Quarter: 2015Q2

REPORT INFORMATION
  Report Type: Report from Study
  Country: US (occurrence: US)
  Receive Date: 20120813
  Receipt Date: 20150625
  Transmission Date: 20150821
  Serious: Yes (Hospitalization, Other)
  Sender: FDA-Public Use
  Company Number: US-ROCHE-1099865

PATIENT
  Sex: Male

DRUGS (7)
  1. ACTIVASE [Suspect]
     Active Substance: ALTEPLASE
     Indication: ACUTE MYOCARDIAL INFARCTION
     Route: 042
  2. ACTIVASE [Suspect]
     Active Substance: ALTEPLASE
     Route: 042
  3. CLAFORAN (UNITED STATES) [Concomitant]
     Route: 042
  4. LASIX [Concomitant]
     Active Substance: FUROSEMIDE
     Dosage: 40
     Route: 042
  5. TRIDIL [Concomitant]
     Active Substance: NITROGLYCERIN
     Route: 042
  6. ACTIVASE [Suspect]
     Active Substance: ALTEPLASE
     Route: 042
  7. HEPARIN [Concomitant]
     Active Substance: HEPARIN SODIUM
     Dosage: 10000 UNITS BOLUS
     Route: 065

REACTIONS (2)
  - Pain [Unknown]
  - Chest pain [Unknown]
